FAERS Safety Report 14535771 (Version 10)
Quarter: 2018Q2

REPORT INFORMATION
  Report Type: Report from Study
  Country: JP (occurrence: JP)
  Receive Date: 20180215
  Receipt Date: 20180510
  Transmission Date: 20180711
  Serious: Yes (Hospitalization, Other)
  Sender: FDA-Public Use
  Company Number: PHJP2017JP001298

PATIENT
  Age: 72 Year
  Sex: Male
  Weight: 51.7 kg

DRUGS (32)
  1. EURASON CREAM [Suspect]
     Active Substance: DEXAMETHASONE
     Dosage: 12 MG, QW2
     Route: 048
     Dates: start: 20180213, end: 20180305
  2. BTZLBH589 [Suspect]
     Active Substance: BORTEZOMIB
     Dosage: 2.12 MG/M2, QW
     Route: 048
     Dates: start: 20180213
  3. PRIMPERAN [Concomitant]
     Active Substance: METOCLOPRAMIDE HYDROCHLORIDE
     Indication: VOMITING
  4. PROMAC [Concomitant]
     Active Substance: NITROFURANTOIN
     Indication: DECREASED APPETITE
     Dosage: 1 G, UNK
     Route: 048
     Dates: start: 20170105
  5. PANTETHINE [Concomitant]
     Active Substance: PANTETHINE
     Dosage: UNK
     Route: 048
     Dates: start: 20161222, end: 20170104
  6. OXINORM [Concomitant]
     Indication: CANCER PAIN
     Dosage: 5 MG, PRN
     Route: 048
     Dates: start: 20160813
  7. FARYDAK [Suspect]
     Active Substance: PANOBINOSTAT
     Indication: PLASMA CELL MYELOMA
     Dosage: 20 MG, QW3
     Route: 048
     Dates: start: 20161216
  8. AIMIX [Concomitant]
     Active Substance: AMLODIPINE BESYLATE\IRBESARTAN
     Indication: HYPERTENSION
     Dosage: 1 DF, UNK
     Route: 048
     Dates: start: 20160708
  9. FLUMETHOLON [Concomitant]
     Active Substance: FLUOROMETHOLONE
     Indication: CATARACT
     Dosage: APPROPRIATE  DOSE, QID
     Route: 047
     Dates: start: 20160723
  10. LOXONIN [Concomitant]
     Active Substance: LOXOPROFEN SODIUM
     Indication: SPINAL COLUMN STENOSIS
     Dosage: 100 MG, UNK
     Route: 062
     Dates: start: 20160329
  11. KALIMATE [Concomitant]
     Active Substance: CALCIUM POLYSTYRENE SULFONATE
     Indication: HYPERKALAEMIA
     Dosage: 75 MG, UNK
     Route: 048
     Dates: start: 20170106
  12. BAKTAR [Concomitant]
     Active Substance: SULFAMETHOXAZOLE\TRIMETHOPRIM
     Indication: INFECTION PROPHYLAXIS
     Dosage: 1 DF, UNK
     Route: 048
     Dates: start: 20161216
  13. KERATINAMIN [Concomitant]
     Active Substance: UREA
     Indication: DRY SKIN PROPHYLAXIS
     Dosage: Q.S., UNK
     Route: 061
     Dates: start: 20171207
  14. BTZLBH589 [Suspect]
     Active Substance: BORTEZOMIB
     Dosage: 2.22 MG, QW
     Route: 048
     Dates: end: 20180305
  15. FARYDAK [Suspect]
     Active Substance: PANOBINOSTAT
     Dosage: 10 MG, QW3
     Route: 048
     Dates: start: 20180213
  16. HALCION [Concomitant]
     Active Substance: TRIAZOLAM
     Indication: INSOMNIA
     Dosage: 0.25 MG, UNK
     Route: 048
     Dates: start: 20160711
  17. HIRUDOID [Concomitant]
     Active Substance: GLYCOSAMINOGLYCANS
     Indication: DRY SKIN PROPHYLAXIS
     Dosage: APPROPRIATE DOSE
     Route: 061
     Dates: start: 20160914
  18. PRIMPERAN [Concomitant]
     Active Substance: METOCLOPRAMIDE HYDROCHLORIDE
     Indication: NAUSEA
     Dosage: 5 MG, UNK
     Route: 048
     Dates: start: 20161217
  19. ZOVIRAX [Concomitant]
     Active Substance: ACYCLOVIR
     Indication: INFECTION PROPHYLAXIS
     Dosage: 200 MG, UNK
     Route: 048
     Dates: start: 20161216
  20. FARYDAK [Suspect]
     Active Substance: PANOBINOSTAT
     Dosage: 20 MG, QW3
     Route: 048
     Dates: end: 20180305
  21. EURASON CREAM [Suspect]
     Active Substance: DEXAMETHASONE
     Indication: PLASMA CELL MYELOMA
     Dosage: 20 MG, QW4
     Route: 048
     Dates: start: 20161216
  22. BTZLBH589 [Suspect]
     Active Substance: BORTEZOMIB
     Indication: PLASMA CELL MYELOMA
     Dosage: 2.12 MG/M2, QW2
     Route: 048
     Dates: start: 20161216
  23. MAGMITT [Concomitant]
     Active Substance: MAGNESIUM OXIDE
     Dosage: UNK
     Route: 048
     Dates: start: 20161222, end: 20170104
  24. HYALEIN [Concomitant]
     Active Substance: HYALURONATE SODIUM
     Indication: CATARACT
     Dosage: APPROPRIATE  DOSE
     Route: 047
     Dates: start: 20160723
  25. POPYIODE [Concomitant]
     Indication: INFECTION PROPHYLAXIS
     Dosage: Q.S., UNK
     Route: 061
     Dates: start: 20170912
  26. MOHRUS [Concomitant]
     Active Substance: KETOPROFEN
     Indication: LUMBAR SPINAL STENOSIS
     Dosage: UNK
     Route: 062
     Dates: start: 20170612
  27. FENTOS [Concomitant]
     Active Substance: FENTANYL
     Indication: CANCER PAIN
     Dosage: 4 MG, UNK
     Route: 061
     Dates: start: 20160813
  28. METHYCOBAL [Concomitant]
     Active Substance: METHYLCOBALAMIN
     Indication: LUMBAR SPINAL STENOSIS
     Dosage: 1500 UG, UNK
     Route: 048
     Dates: start: 20171231
  29. PANTETHINE [Concomitant]
     Active Substance: PANTETHINE
     Indication: CONSTIPATION
     Dosage: 600 MG, UNK
     Route: 048
     Dates: start: 20160805
  30. FAMOTIDINE. [Concomitant]
     Active Substance: FAMOTIDINE
     Indication: PROPHYLAXIS AGAINST GASTROINTESTINAL ULCER
     Dosage: 10 MG, UNK
     Route: 048
     Dates: start: 20160907
  31. MAGMITT [Concomitant]
     Active Substance: MAGNESIUM OXIDE
     Indication: CONSTIPATION
     Dosage: 880 MG, UNK
     Route: 048
     Dates: start: 20160805
  32. ADJUST-A [Concomitant]
     Active Substance: SENNA LEAF\SENNOSIDES\SENNOSIDES A AND B
     Indication: CONSTIPATION
     Dosage: 40 MG, PRN
     Route: 048
     Dates: start: 20180112

REACTIONS (3)
  - Pneumonia [Recovered/Resolved]
  - Sepsis [Recovered/Resolved]
  - Pyrexia [Recovered/Resolved]

NARRATIVE: CASE EVENT DATE: 20170105
